FAERS Safety Report 8025255-6 (Version None)
Quarter: 2012Q1

REPORT INFORMATION
  Report Type: 
  Country: None (occurrence: None)
  Receive Date: 20120105
  Receipt Date: 20120103
  Transmission Date: 20120608
  Serious: No
  Sender: FDA-Public Use
  Company Number: US-PFIZER INC-2011209083

PATIENT
  Sex: Female
  Weight: 65.76 kg

DRUGS (2)
  1. IBUPROFEN (ADVIL) [Suspect]
     Indication: ARTHRITIS
     Dosage: UNK, 1X/DAY
     Route: 048
     Dates: start: 20110901, end: 20110906
  2. IBUPROFEN (ADVIL) [Suspect]
     Dosage: UNK

REACTIONS (3)
  - MUSCULOSKELETAL PAIN [None]
  - DRUG INEFFECTIVE [None]
  - MUSCULOSKELETAL STIFFNESS [None]
